FAERS Safety Report 13048603 (Version 1)
Quarter: 2016Q4

REPORT INFORMATION
  Report Type: Report from Study
  Country: US (occurrence: US)
  Receive Date: 20161221
  Receipt Date: 20161221
  Transmission Date: 20170207
  Serious: Yes (Hospitalization, Other)
  Sender: FDA-Public Use
  Company Number: PHHO2014US019907

PATIENT
  Age: 58 Year
  Sex: Female
  Weight: 57.6 kg

DRUGS (12)
  1. CLINDAMYCIN. [Concomitant]
     Active Substance: CLINDAMYCIN
     Indication: RASH
     Dosage: 1 %, BID
     Route: 065
  2. SENNA [Concomitant]
     Active Substance: SENNA LEAF\SENNOSIDES\SENNOSIDES A AND B
     Indication: CONSTIPATION
     Dosage: 8.8 MG/ML, BID TAKE 5 TO 10 ML
     Route: 065
  3. RADIOTHERAPY [Suspect]
     Active Substance: RADIATION THERAPY
     Indication: HEAD AND NECK CANCER
     Dosage: UNK
     Route: 065
     Dates: start: 20140917
  4. LORAZEPAM. [Concomitant]
     Active Substance: LORAZEPAM
     Indication: VOMITING
  5. CISPLATIN. [Suspect]
     Active Substance: CISPLATIN
     Indication: HEAD AND NECK CANCER
     Dosage: 100 MG/M2, CYCLIC
     Route: 042
     Dates: start: 20140917
  6. LOPERAMIDE [Concomitant]
     Active Substance: LOPERAMIDE
     Indication: DIARRHOEA
     Dosage: 2 MG, UNK
     Route: 048
  7. OXYCODONE [Concomitant]
     Active Substance: OXYCODONE
     Dosage: 5 MG/ML, Q4H 5 TO 10 ML
     Route: 048
  8. GW572016 [Suspect]
     Active Substance: LAPATINIB
     Indication: HEAD AND NECK CANCER
     Dosage: 1500 MG, QD
     Route: 048
     Dates: start: 20140910
  9. COMPAZINE [Concomitant]
     Active Substance: PROCHLORPERAZINE MALEATE
     Indication: NAUSEA
     Dosage: 10 MG, TAB EVERY 6HRS
     Route: 048
  10. LORAZEPAM. [Concomitant]
     Active Substance: LORAZEPAM
     Indication: NAUSEA
     Dosage: 0.5 MG, EVERY 6 HRS FOR N+V
     Route: 065
  11. OXYCODONE [Concomitant]
     Active Substance: OXYCODONE
     Indication: PAIN
     Dosage: 30 MG, BID ONE TAB
     Route: 048
  12. BIOTENE DRY MOUTH [Concomitant]
     Indication: DRY MOUTH
     Dosage: 5 ML, Q4H 5 TO 10 ML
     Route: 065

REACTIONS (8)
  - Diarrhoea [Unknown]
  - Hyponatraemia [Recovered/Resolved]
  - Rash [Unknown]
  - Dehydration [Recovered/Resolved]
  - Tumour pain [Recovered/Resolved]
  - Decreased appetite [Recovered/Resolved]
  - Nausea [Recovered/Resolved]
  - Hypokalaemia [Recovered/Resolved]

NARRATIVE: CASE EVENT DATE: 201405
